FAERS Safety Report 9375553 (Version 1)
Quarter: 2013Q2

REPORT INFORMATION
  Report Type: Spontaneous
  Country: DE (occurrence: DE)
  Receive Date: 20130628
  Receipt Date: 20130628
  Transmission Date: 20140414
  Serious: Yes (Congenital Anomaly, Other)
  Sender: FDA-Public Use
  Company Number: DE-TEVA-414947GER

PATIENT
  Age: 0 Year
  Sex: Female

DRUGS (4)
  1. MIRTAZAPIN [Suspect]
     Route: 064
  2. BISOPROLOL [Suspect]
     Route: 064
  3. METOPROLOL [Suspect]
     Route: 064
  4. FOLS?URE [Concomitant]
     Route: 064

REACTIONS (3)
  - Congenital hydronephrosis [Unknown]
  - Renal aplasia [Not Recovered/Not Resolved]
  - Low birth weight baby [Unknown]
